FAERS Safety Report 4899495-9 (Version None)
Quarter: 2006Q1

REPORT INFORMATION
  Report Type: 
  Country: None (occurrence: None)
  Receive Date: 20060131
  Receipt Date: 20060119
  Transmission Date: 20060701
  Serious: Yes (Death, Hospitalization)
  Sender: FDA-Public Use
  Company Number: A044-002-005899

PATIENT
  Age: 84 Year
  Sex: Female

DRUGS (9)
  1. ARICEPT [Suspect]
     Indication: DEMENTIA ALZHEIMER'S TYPE
     Dosage: 5 MG, 1 IN 1 D, ORAL; SEE IMAGE
     Route: 048
     Dates: start: 20050901, end: 20050930
  2. ARICEPT [Suspect]
     Indication: DEMENTIA ALZHEIMER'S TYPE
     Dosage: 5 MG, 1 IN 1 D, ORAL; SEE IMAGE
     Route: 048
     Dates: start: 20051001, end: 20051207
  3. IRBESARTAN / HYDROCHLOROTHIAZIDE (KARVEA HCT) [Suspect]
     Indication: HYPERTENSION
     Dosage: 300 MG, 1 IN 1 D, ORAL; FOR MORE THAN 1 YEAR
     Route: 048
     Dates: end: 20051207
  4. LERCANIDIPINE [Suspect]
     Indication: HYPERTENSION
     Dosage: 10 MG, 1 IN 1 D, ORAL; FOR MORE THAN A YEAR
     Route: 048
     Dates: end: 20051207
  5. SERTRALINE HCL [Suspect]
     Indication: DEPRESSION
     Dosage: 1 DOSE FORMS, 1 IN 1 D, ORAL; FOR MORE THAN 1 YEAR
     Route: 048
     Dates: end: 20051207
  6. MEPROBAMATE ACEPROMETAZINE (MEPRONIZINE) [Suspect]
     Dosage: 2 DOSAGE FORMS, 1 IN 1 D, ORAL; FOR MORE THAN 1 YEAR
     Route: 048
     Dates: end: 20051207
  7. REPAGLINIDE (REPAGLINIDE) [Concomitant]
  8. RILMENIDINE (RILMENIDINE) [Concomitant]
  9. TIAPRIDE (TIAPRIDE) [Concomitant]

REACTIONS (6)
  - AMMONIA INCREASED [None]
  - DEPRESSED LEVEL OF CONSCIOUSNESS [None]
  - GENERAL PHYSICAL HEALTH DETERIORATION [None]
  - HEPATITIS FULMINANT [None]
  - PNEUMONIA ASPIRATION [None]
  - RESPIRATORY DISTRESS [None]
